FAERS Safety Report 14502165 (Version 3)
Quarter: 2018Q3

REPORT INFORMATION
  Report Type: Report from Study
  Country: None (occurrence: US)
  Receive Date: 20180208
  Receipt Date: 20180716
  Transmission Date: 20181010
  Serious: Yes (Hospitalization, Other)
  Sender: FDA-Public Use
  Company Number: US-ABBVIE-18K-163-2249102-00

PATIENT
  Sex: Male
  Weight: 61.29 kg

DRUGS (5)
  1. HUMIRA [Suspect]
     Active Substance: ADALIMUMAB
     Indication: COLITIS ULCERATIVE
     Route: 058
     Dates: start: 2015, end: 20171223
  2. HUMIRA [Suspect]
     Active Substance: ADALIMUMAB
     Route: 058
     Dates: start: 20180113, end: 2018
  3. HYDROCHLOROTHIAZIDE. [Concomitant]
     Active Substance: HYDROCHLOROTHIAZIDE
     Indication: PRODUCT USED FOR UNKNOWN INDICATION
  4. HUMIRA [Suspect]
     Active Substance: ADALIMUMAB
     Route: 058
     Dates: start: 2018
  5. ZANTAC [Concomitant]
     Active Substance: RANITIDINE HYDROCHLORIDE
     Indication: PRODUCT USED FOR UNKNOWN INDICATION

REACTIONS (11)
  - Dehydration [Recovered/Resolved]
  - Device related infection [Recovered/Resolved]
  - Blood potassium decreased [Recovered/Resolved]
  - Colitis ulcerative [Recovered/Resolved]
  - Colitis ulcerative [Recovered/Resolved]
  - Weight decreased [Recovering/Resolving]
  - Colitis ulcerative [Not Recovered/Not Resolved]
  - Asthenia [Recovering/Resolving]
  - Pyrexia [Recovered/Resolved]
  - Dehydration [Recovered/Resolved]
  - Gallbladder polyp [Recovered/Resolved]

NARRATIVE: CASE EVENT DATE: 2015
